FAERS Safety Report 8509530-4 (Version None)
Quarter: 2012Q3

REPORT INFORMATION
  Report Type: 
  Country: None (occurrence: None)
  Receive Date: 20120713
  Receipt Date: 20120703
  Transmission Date: 20120928
  Serious: Yes (Hospitalization, Other)
  Sender: FDA-Public Use
  Company Number: BR-JNJFOC-20120705498

PATIENT
  Sex: Female

DRUGS (18)
  1. LYRICA [Suspect]
     Route: 048
     Dates: start: 20110703
  2. LYRICA [Suspect]
     Route: 048
  3. NEBIVOLOL HCL [Concomitant]
     Indication: PRODUCT USED FOR UNKNOWN INDICATION
     Route: 065
     Dates: end: 20120601
  4. MIDAZOLAM [Concomitant]
     Indication: PRODUCT USED FOR UNKNOWN INDICATION
     Route: 065
  5. GABAPENTIN [Concomitant]
     Indication: PRODUCT USED FOR UNKNOWN INDICATION
     Route: 065
  6. TANDRILAX [Concomitant]
     Indication: PAIN
     Route: 048
     Dates: start: 20070101
  7. TRAMADOL HYDROCHLORIDE [Suspect]
     Indication: PAIN
     Route: 065
     Dates: start: 20070620
  8. LYRICA [Suspect]
     Indication: BACK PAIN
     Route: 048
  9. LYRICA [Suspect]
     Route: 048
  10. ZOLPIDEM [Concomitant]
     Indication: SLEEP DISORDER
     Route: 048
     Dates: end: 20110101
  11. LYRICA [Suspect]
     Route: 048
     Dates: start: 20110703
  12. LYRICA [Suspect]
     Indication: INTERVERTEBRAL DISC PROTRUSION
     Route: 048
  13. ENALAPRIL MALEATE [Concomitant]
     Indication: HYPERTENSION
     Route: 048
     Dates: start: 20110101
  14. ATENOLOL [Concomitant]
     Indication: TACHYCARDIA
     Route: 065
     Dates: start: 20120601
  15. LYRICA [Suspect]
     Indication: PAIN
     Route: 048
  16. RYTHMOL [Concomitant]
     Indication: PRODUCT USED FOR UNKNOWN INDICATION
     Route: 065
     Dates: end: 20120601
  17. LYRICA [Suspect]
     Route: 048
     Dates: start: 20110703
  18. LYRICA [Suspect]
     Route: 048

REACTIONS (8)
  - INSOMNIA [None]
  - HYPERTENSION [None]
  - DRY MOUTH [None]
  - DEPRESSION [None]
  - VISION BLURRED [None]
  - CONSTIPATION [None]
  - SPINAL DISORDER [None]
  - PAIN [None]
